FAERS Safety Report 7394722-0 (Version None)
Quarter: 2011Q2

REPORT INFORMATION
  Report Type: 
  Country: None (occurrence: None)
  Receive Date: 20110405
  Receipt Date: 20110324
  Transmission Date: 20111010
  Serious: Yes (Hospitalization)
  Sender: FDA-Public Use
  Company Number: PHHO2011US04540

PATIENT
  Sex: Female

DRUGS (11)
  1. LANTUS [Concomitant]
  2. ACTOS [Concomitant]
  3. KLOR-CON [Concomitant]
  4. SIMVASTATIN [Concomitant]
  5. ZETIA [Concomitant]
  6. GLYBURIDE [Concomitant]
  7. TASIGNA [Suspect]
     Indication: CHRONIC MYELOID LEUKAEMIA
     Dosage: 200 MG, BID
     Route: 048
     Dates: start: 20090210
  8. FUROSEMIDE [Concomitant]
  9. LEVOTHYROXINE SODIUM [Concomitant]
  10. ALEVE [Concomitant]
  11. LISINOPRIL [Concomitant]

REACTIONS (3)
  - RIB FRACTURE [None]
  - DIABETIC COMPLICATION [None]
  - FALL [None]
